FAERS Safety Report 24411926 (Version 2)
Quarter: 2025Q2

REPORT INFORMATION
  Report Type: Spontaneous
  Country: US (occurrence: US)
  Receive Date: 20241008
  Receipt Date: 20250428
  Transmission Date: 20250716
  Serious: Yes (Other)
  Sender: LABORATOIRES SERB
  Company Number: US-SERB S.A.S.-2162649

PATIENT
  Age: 32 Year
  Sex: Male

DRUGS (5)
  1. CYANOKIT [Suspect]
     Active Substance: HYDROXOCOBALAMIN
     Indication: Carbon monoxide poisoning
  2. CYANOKIT [Suspect]
     Active Substance: HYDROXOCOBALAMIN
     Indication: Exposure to toxic agent
  3. ALBUTEROL [Suspect]
     Active Substance: ALBUTEROL
  4. HEPARIN [Suspect]
     Active Substance: HEPARIN SODIUM
  5. MUCOMYST [Suspect]
     Active Substance: ACETYLCYSTEINE

REACTIONS (2)
  - Visual impairment [Recovered/Resolved]
  - Hemianopia heteronymous [Recovered/Resolved]
